FAERS Safety Report 8010247-3 (Version None)
Quarter: 2011Q4

REPORT INFORMATION
  Report Type: 
  Country: None (occurrence: None)
  Receive Date: 20111228
  Receipt Date: 20111218
  Transmission Date: 20120403
  Serious: Yes (Other)
  Sender: FDA-Public Use
  Company Number: US-SHIRE-ALL1-2011-05013

PATIENT
  Sex: Male
  Weight: 79.365 kg

DRUGS (6)
  1. ASPIRIN [Concomitant]
     Indication: ATRIAL FIBRILLATION
     Dosage: 81 MG, 1X/DAY:QD
     Route: 048
     Dates: start: 20090101
  2. WELLBUTRIN XL [Concomitant]
     Indication: DEPRESSION
     Dosage: 150 MG, 1X/DAY:QD
     Route: 048
     Dates: start: 20090101
  3. VYVANSE [Suspect]
     Indication: ATTENTION DEFICIT/HYPERACTIVITY DISORDER
     Dosage: 100 MG, 2X/DAY:BID
     Route: 048
     Dates: start: 20090101
  4. NUVIGIL [Concomitant]
     Indication: MEMORY IMPAIRMENT
     Dosage: 150 MG, 1X/DAY:QD
     Route: 048
  5. GLIPIZIDE [Concomitant]
     Indication: DIABETES MELLITUS
     Dosage: 10 MG, 1X/DAY:QD
     Route: 048
     Dates: start: 20090101
  6. VYVANSE [Suspect]
     Indication: MEMORY IMPAIRMENT

REACTIONS (5)
  - PRODUCT QUALITY ISSUE [None]
  - OVERDOSE [None]
  - INAPPROPRIATE SCHEDULE OF DRUG ADMINISTRATION [None]
  - DIABETES MELLITUS [None]
  - DRUG INEFFECTIVE [None]
